FAERS Safety Report 25113415 (Version 1)
Quarter: 2025Q1

REPORT INFORMATION
  Report Type: Spontaneous
  Country: NL (occurrence: NL)
  Receive Date: 20250324
  Receipt Date: 20250324
  Transmission Date: 20250409
  Serious: Yes (Other)
  Sender: TEVA
  Company Number: None

PATIENT
  Age: 38 Year
  Sex: Female
  Weight: 60 kg

DRUGS (1)
  1. BUPROPION [Suspect]
     Active Substance: BUPROPION
     Indication: Attention deficit hyperactivity disorder
     Dosage: 1 PIECE 1X DAILY: TABLET MGA / BRAND NAME NOT SPECIFIED
     Route: 048
     Dates: start: 20250207, end: 20250227

REACTIONS (6)
  - Acute generalised exanthematous pustulosis [Not Recovered/Not Resolved]
  - Rash pustular [Not Recovered/Not Resolved]
  - Pyrexia [Not Recovered/Not Resolved]
  - Ear swelling [Not Recovered/Not Resolved]
  - Rash erythematous [Not Recovered/Not Resolved]
  - Lymphadenopathy [Not Recovered/Not Resolved]
